FAERS Safety Report 20190275 (Version 1)
Quarter: 2021Q4

REPORT INFORMATION
  Report Type: Spontaneous
  Country: None (occurrence: A1)
  Receive Date: 20211215
  Receipt Date: 20211215
  Transmission Date: 20220303
  Serious: Yes (Hospitalization, Other)
  Sender: FDA-Public Use
  Company Number: A1-Acella Pharmaceuticals, LLC-2123078

PATIENT
  Age: 65 Year
  Sex: Female

DRUGS (1)
  1. GABAPENTIN [Suspect]
     Active Substance: GABAPENTIN
     Indication: Neuralgia
     Route: 065

REACTIONS (6)
  - Drug eruption [Recovered/Resolved]
  - Skin plaque [Recovered/Resolved]
  - Erythema [Recovered/Resolved]
  - Pyrexia [Unknown]
  - Leukocytosis [Unknown]
  - Acute febrile neutrophilic dermatosis [Unknown]
